FAERS Safety Report 7318807-X (Version None)
Quarter: 2011Q1

REPORT INFORMATION
  Report Type: 
  Country: None (occurrence: None)
  Receive Date: 20110228
  Receipt Date: 20100823
  Transmission Date: 20110831
  Serious: No
  Sender: FDA-Public Use
  Company Number: A0868518A

PATIENT
  Age: 60 Year
  Sex: Female

DRUGS (3)
  1. IMITREX [Suspect]
     Route: 048
  2. SUMATRIPTAN SUCCINATE [Suspect]
     Route: 058
  3. IMITREX [Suspect]
     Indication: MIGRAINE
     Route: 058

REACTIONS (7)
  - HYPERTENSION [None]
  - INJECTION SITE DISCOMFORT [None]
  - DRUG ADMINISTRATION ERROR [None]
  - NEEDLE ISSUE [None]
  - INJECTION SITE HAEMORRHAGE [None]
  - THERAPEUTIC RESPONSE DECREASED [None]
  - PRODUCT QUALITY ISSUE [None]
